FAERS Safety Report 12105411 (Version 3)
Quarter: 2016Q1

REPORT INFORMATION
  Report Type: Report from Study
  Country: DE (occurrence: DE)
  Receive Date: 20160223
  Receipt Date: 20160328
  Transmission Date: 20160526
  Serious: Yes (Death, Hospitalization)
  Sender: FDA-Public Use
  Company Number: PHHY2016DE018196

PATIENT
  Sex: Male
  Weight: 92 kg

DRUGS (1)
  1. EVEROLIMUS [Suspect]
     Active Substance: EVEROLIMUS
     Indication: METASTATIC RENAL CELL CARCINOMA
     Dosage: 10 MG, QD (PER DAY)
     Route: 048
     Dates: start: 20150908, end: 20160128

REACTIONS (6)
  - Pleural effusion [Fatal]
  - Metastatic renal cell carcinoma [Fatal]
  - General physical health deterioration [Fatal]
  - Pleural effusion [Recovered/Resolved]
  - Haemothorax [Unknown]
  - Dyspnoea [Fatal]

NARRATIVE: CASE EVENT DATE: 20151012
